FAERS Safety Report 4725204-X (Version None)
Quarter: 2005Q3

REPORT INFORMATION
  Report Type: 
  Country: None (occurrence: None)
  Receive Date: 20050725
  Receipt Date: 20050714
  Transmission Date: 20060218
  Serious: Yes (Other)
  Sender: FDA-Public Use
  Company Number: 050526-0000650

PATIENT
  Sex: Male
  Weight: 58.9676 kg

DRUGS (6)
  1. DESOXYN [Suspect]
     Indication: NARCOLEPSY
     Dosage: 30 MG; Q4H; PO
     Route: 048
  2. XANAX [Suspect]
     Dosage: 2 MG
  3. OXYCONTIN [Suspect]
     Dosage: 80 MG; Q4H
  4. DURAGESIC PATCHES [Suspect]
     Dosage: 100 MCG
  5. PRILOSEC [Suspect]
     Dosage: 40 MG, QD
  6. NEURONTIN [Suspect]
     Dosage: 300 MG; Q4H

REACTIONS (11)
  - DIFFICULTY IN WALKING [None]
  - DRUG ABUSER [None]
  - FATIGUE [None]
  - IMPAIRED DRIVING ABILITY [None]
  - IMPRISONMENT [None]
  - INTENTIONAL MISUSE [None]
  - LOSS OF CONSCIOUSNESS [None]
  - MURDER [None]
  - PAIN [None]
  - ROAD TRAFFIC ACCIDENT [None]
  - SPEECH DISORDER [None]
